FAERS Safety Report 13775298 (Version 1)
Quarter: 2017Q3

REPORT INFORMATION
  Report Type: Spontaneous
  Country: US (occurrence: US)
  Receive Date: 20170720
  Receipt Date: 20170720
  Transmission Date: 20171127
  Serious: No
  Sender: FDA-Public Use
  Company Number: None

PATIENT
  Age: 73 Year
  Sex: Male

DRUGS (1)
  1. REPATHA [Suspect]
     Active Substance: EVOLOCUMAB
     Indication: HYPERLIPIDAEMIA
     Route: 058
     Dates: start: 20170308, end: 20170614

REACTIONS (5)
  - Loss of personal independence in daily activities [None]
  - Muscle twitching [None]
  - Confusional state [None]
  - Arthralgia [None]
  - Tremor [None]

NARRATIVE: CASE EVENT DATE: 20170517
